FAERS Safety Report 16098522 (Version 1)
Quarter: 2019Q1

REPORT INFORMATION
  Report Type: Report from Study
  Country: FR (occurrence: FR)
  Receive Date: 20190321
  Receipt Date: 20190321
  Transmission Date: 20190418
  Serious: Yes (Hospitalization)
  Sender: FDA-Public Use
  Company Number: FR-ROCHE-2243710

PATIENT
  Age: 56 Year
  Sex: Female
  Weight: 65 kg

DRUGS (18)
  1. ATEZOLIZUMAB. [Suspect]
     Active Substance: ATEZOLIZUMAB
     Indication: NON-SMALL CELL LUNG CANCER STAGE IV
     Dosage: ON 29/NOV/2018, MOST RECENT DOSE OF ATEZOLIZUMAB PRIOR TO AE ONSET.
     Route: 042
     Dates: start: 20161228
  2. SMECTA [Concomitant]
     Active Substance: MONTMORILLONITE
  3. BEVACIZUMAB. [Suspect]
     Active Substance: BEVACIZUMAB
     Indication: NON-SMALL CELL LUNG CANCER STAGE IV
     Dosage: ON 29/NOV/2018, MOST RECENT DOSE (950 MG) OF BEVACIZUMAB PRIOR TO AE ONSET.
     Route: 042
     Dates: start: 20161228
  4. LEVOTHYROX [Concomitant]
     Active Substance: LEVOTHYROXINE
     Indication: HYPOTHYROIDISM
     Route: 065
     Dates: start: 1994
  5. OROKEN [Concomitant]
     Active Substance: CEFIXIME
     Indication: CHRONIC OBSTRUCTIVE PULMONARY DISEASE
     Route: 065
     Dates: start: 20180917
  6. MONAZOL [Concomitant]
     Active Substance: SERTACONAZOLE NITRATE
     Indication: VULVOVAGINAL MYCOTIC INFECTION
  7. OROKEN [Concomitant]
     Active Substance: CEFIXIME
     Indication: CHRONIC OBSTRUCTIVE PULMONARY DISEASE
     Route: 065
     Dates: start: 20180917
  8. TRIATEC (FRANCE) [Concomitant]
     Active Substance: RAMIPRIL
     Indication: HYPERTENSION
     Route: 065
     Dates: start: 20181221
  9. TEMERIT [Concomitant]
     Active Substance: NEBIVOLOL
     Indication: HYPERTENSION
     Route: 065
     Dates: start: 20170512
  10. TIORFAN [Concomitant]
     Active Substance: RACECADOTRIL
     Indication: DIARRHOEA
     Route: 065
     Dates: start: 201807
  11. IMOVANE [Concomitant]
     Active Substance: ZOPICLONE
     Indication: INSOMNIA
  12. IMODIUM [Concomitant]
     Active Substance: LOPERAMIDE HYDROCHLORIDE
  13. OFLOCET [Concomitant]
     Active Substance: OFLOXACIN
     Indication: CHRONIC OBSTRUCTIVE PULMONARY DISEASE
     Route: 065
     Dates: start: 20180917
  14. MONAZOL [Concomitant]
     Active Substance: SERTACONAZOLE NITRATE
     Indication: VULVOVAGINAL MYCOTIC INFECTION
     Route: 065
     Dates: start: 20181018, end: 20181020
  15. FLUTIFORM [Concomitant]
     Active Substance: FLUTICASONE PROPIONATE\FORMOTEROL FUMARATE
     Indication: CHRONIC OBSTRUCTIVE PULMONARY DISEASE
  16. POLYGYNAX (FRANCE) [Concomitant]
     Indication: VAGINAL INFECTION
     Route: 065
     Dates: start: 20180301, end: 20180312
  17. CARBOPLATIN. [Suspect]
     Active Substance: CARBOPLATIN
     Indication: NON-SMALL CELL LUNG CANCER STAGE IV
     Dosage: DOSE:  6 MILLIGRAMS PER MILLILITER PER MINUTE (MG/ML/MIN)?ON 07/MAR/2017, MOST RECENT DOSE (470 MG)
     Route: 042
     Dates: start: 20161228
  18. PACLITAXEL. [Suspect]
     Active Substance: PACLITAXEL
     Indication: NON-SMALL CELL LUNG CANCER STAGE IV
     Dosage: ON 07/MAR/2017, MOST RECENT DOSE (340 MG) OF PACLITAXEL PRIOR TO AE ONSET
     Route: 042
     Dates: start: 20161228

REACTIONS (2)
  - Proteinuria [Not Recovered/Not Resolved]
  - Renal failure [Not Recovered/Not Resolved]

NARRATIVE: CASE EVENT DATE: 20170327
